FAERS Safety Report 8012705-4 (Version None)
Quarter: 2011Q4

REPORT INFORMATION
  Report Type: 
  Country: None (occurrence: None)
  Receive Date: 20111229
  Receipt Date: 20111227
  Transmission Date: 20120403
  Serious: Yes (Other)
  Sender: FDA-Public Use
  Company Number: US-JNJFOC-20111211378

PATIENT
  Sex: Male
  Weight: 76.66 kg

DRUGS (4)
  1. LISINOPRIL [Concomitant]
     Indication: BLOOD PRESSURE
     Route: 048
  2. DURAGESIC-100 [Suspect]
     Route: 062
  3. DURAGESIC-100 [Suspect]
     Indication: NEUROPATHY PERIPHERAL
     Route: 062
  4. DURAGESIC-100 [Suspect]
     Route: 062

REACTIONS (4)
  - ANAEMIA [None]
  - HYPERHIDROSIS [None]
  - BLOOD TESTOSTERONE DECREASED [None]
  - PRODUCT QUALITY ISSUE [None]
